FAERS Safety Report 23644766 (Version 2)
Quarter: 2024Q1

REPORT INFORMATION
  Report Type: Spontaneous
  Country: ES (occurrence: ES)
  Receive Date: 20240318
  Receipt Date: 20240327
  Transmission Date: 20240409
  Serious: Yes (Other)
  Sender: FDA-Public Use
  Company Number: ES-002147023-NVSC2024ES049758

PATIENT

DRUGS (8)
  1. RUXOLITINIB [Suspect]
     Active Substance: RUXOLITINIB
     Indication: Myelofibrosis
     Dosage: 20 MILLIGRAM, Q12H
     Route: 048
     Dates: start: 202309
  2. HYDREA [Concomitant]
     Active Substance: HYDROXYUREA
     Indication: Polycythaemia vera
     Dosage: UNK (ACCORDING TO COUNTS)
     Route: 065
  3. ASPIRIN [Concomitant]
     Active Substance: ASPIRIN
     Indication: Polycythaemia vera
     Dosage: 100 MG, Q24H
     Route: 065
  4. ATORVASTATIN [Concomitant]
     Active Substance: ATORVASTATIN
     Indication: Product used for unknown indication
     Dosage: 20 MG, Q24H
     Route: 065
  5. OMEPRAZOLE [Concomitant]
     Active Substance: OMEPRAZOLE
     Indication: Product used for unknown indication
     Dosage: 20 MG, Q24H
     Route: 065
  6. ALLOPURINOL [Concomitant]
     Active Substance: ALLOPURINOL
     Indication: Product used for unknown indication
     Dosage: 300 MG, Q24H
     Route: 065
  7. OSVICAL [Concomitant]
     Indication: Product used for unknown indication
     Dosage: UNK, Q24H
     Route: 065
  8. AVELUMAB [Concomitant]
     Active Substance: AVELUMAB
     Indication: Product used for unknown indication
     Dosage: UNK, Q2W
     Route: 065

REACTIONS (2)
  - Neuroendocrine carcinoma of the skin [Unknown]
  - Neoplasm skin [Unknown]

NARRATIVE: CASE EVENT DATE: 20240201
